FAERS Safety Report 5924532-X (Version None)
Quarter: 2008Q3

REPORT INFORMATION
  Report Type: 
  Country: None (occurrence: None)
  Receive Date: 20080909
  Receipt Date: 20080219
  Transmission Date: 20090109
  Serious: Yes (Hospitalization)
  Sender: FDA-Public Use
  Company Number: 163-20785-08021025

PATIENT
  Age: 72 Year
  Sex: Male
  Weight: 102 kg

DRUGS (4)
  1. THALOMID [Suspect]
     Indication: GLIOBLASTOMA MULTIFORME
     Dosage: 200 MG, QD, ORAL
     Route: 048
     Dates: start: 20071009, end: 20080107
  2. TEMOZOLOMIDE [Suspect]
     Indication: GLIOBLASTOMA MULTIFORME
     Dosage: 150 MG, HS, 7 DAYS ON AND 7 OFF, ORAL
     Route: 048
     Dates: start: 20071009, end: 20080107
  3. CELEBREX [Suspect]
     Indication: GLIOBLASTOMA MULTIFORME
     Dosage: 400 MG, BID FOR 21 DAYS OF 28 DAY CYCLE
     Dates: start: 20071009, end: 20080107
  4. ACCUTANE [Suspect]
     Indication: GLIOBLASTOMA MULTIFORME
     Dosage: 60 MG, BID FOR 21 DAYS OF 28 DAY CYCLE, ORAL
     Route: 048
     Dates: start: 20071009, end: 20080107

REACTIONS (1)
  - BRONCHITIS [None]
